FAERS Safety Report 6045072-6 (Version None)
Quarter: 2009Q1

REPORT INFORMATION
  Report Type: 
  Country: None (occurrence: None)
  Receive Date: 20090116
  Receipt Date: 20090116
  Transmission Date: 20090719
  Serious: Yes (Hospitalization)
  Sender: FDA-Public Use
  Company Number: None

PATIENT
  Sex: Male
  Weight: 70 kg

DRUGS (7)
  1. ABRAXANE [Suspect]
     Indication: PANCREATIC CARCINOMA
     Dosage: 389 MG D1/CYCLE 042
     Dates: start: 20080728, end: 20081229
  2. VANDETANIB [Suspect]
     Indication: PANCREATIC CARCINOMA
     Dosage: 200 MG QD X 21 DAYS 047
     Dates: start: 20080728, end: 20090106
  3. CREON [Concomitant]
  4. LOTENSIN [Concomitant]
  5. PROTONIX [Concomitant]
  6. INSULIN PUMP [Concomitant]
  7. AMLODIPINE [Concomitant]

REACTIONS (4)
  - BACK DISORDER [None]
  - GASTROINTESTINAL ULCER HAEMORRHAGE [None]
  - HAEMATOCRIT DECREASED [None]
  - SYNCOPE [None]
